FAERS Safety Report 21048059 (Version 3)
Quarter: 2022Q3

REPORT INFORMATION
  Report Type: Spontaneous
  Country: US (occurrence: US)
  Receive Date: 20220706
  Receipt Date: 20220706
  Transmission Date: 20221027
  Serious: No
  Sender: FDA-Public Use
  Company Number: US-PFIZER INC-202200920283

PATIENT
  Age: 76 Year
  Sex: Male
  Weight: 116 kg

DRUGS (3)
  1. PAXLOVID [Suspect]
     Active Substance: NIRMATRELVIR\RITONAVIR
     Indication: COVID-19 treatment
     Dosage: 3 DF, 4X/DAY (TOOK 3 PILLS 4 TIMES IN ONE DAY)
     Dates: start: 20220628
  2. PAXLOVID [Suspect]
     Active Substance: NIRMATRELVIR\RITONAVIR
     Dosage: 3 DF, 4X/DAY (TOOK 3 PILLS 4 TIMES IN ONE DAY)
     Dates: start: 20220629
  3. PAXLOVID [Suspect]
     Active Substance: NIRMATRELVIR\RITONAVIR
     Dosage: 3 DF, 3X/DAY (HE TOOK THREE PILLS THREE TIMES IN ONE DAY)
     Dates: start: 20220630

REACTIONS (2)
  - Intentional product misuse [Unknown]
  - Overdose [Unknown]

NARRATIVE: CASE EVENT DATE: 20220628
